FAERS Safety Report 13946533 (Version 1)
Quarter: 2017Q3

REPORT INFORMATION
  Report Type: Spontaneous
  Country: JP (occurrence: JP)
  Receive Date: 20170907
  Receipt Date: 20170907
  Transmission Date: 20171128
  Serious: Yes (Other)
  Sender: FDA-Public Use
  Company Number: PHJP2017JP027384

PATIENT
  Age: 57 Year
  Sex: Female

DRUGS (1)
  1. FEMARA [Suspect]
     Active Substance: LETROZOLE
     Indication: BREAST CANCER
     Dosage: UNK
     Route: 048
     Dates: start: 201504, end: 201708

REACTIONS (4)
  - Hepatic infarction [Unknown]
  - Hepatic function abnormal [Not Recovered/Not Resolved]
  - Malaise [Unknown]
  - Portal vein occlusion [Not Recovered/Not Resolved]

NARRATIVE: CASE EVENT DATE: 201708
